FAERS Safety Report 17000761 (Version 1)
Quarter: 2019Q4

REPORT INFORMATION
  Report Type: Spontaneous
  Country: US (occurrence: US)
  Receive Date: 20191106
  Receipt Date: 20191106
  Transmission Date: 20200122
  Serious: Yes (Other)
  Sender: FDA-Public Use
  Company Number: US-AMERICAN REGENT INC-2019002379

PATIENT
  Sex: Female

DRUGS (1)
  1. DEXFERRUM [Suspect]
     Active Substance: IRON DEXTRAN
     Indication: PRODUCT USED FOR UNKNOWN INDICATION
     Dosage: 1025 MILLIGRAM
     Route: 042
     Dates: start: 20191028, end: 20191028

REACTIONS (3)
  - Wheezing [Unknown]
  - Pyrexia [Unknown]
  - Chromaturia [Unknown]

NARRATIVE: CASE EVENT DATE: 20191028
